FAERS Safety Report 21004175 (Version 2)
Quarter: 2022Q4

REPORT INFORMATION
  Report Type: Spontaneous
  Country: US (occurrence: US)
  Receive Date: 20220624
  Receipt Date: 20221225
  Transmission Date: 20230113
  Serious: Yes (Death)
  Sender: FDA-Public Use
  Company Number: US-AVEO ONCOLOGY-2022-AVEO-US000106

PATIENT

DRUGS (21)
  1. FOTIVDA [Suspect]
     Active Substance: TIVOZANIB HYDROCHLORIDE
     Indication: Renal cell carcinoma
     Dosage: 1.34 MG, DAILY FOR 21 DAYS WITH 7 DAYS OFF (28-DAY CYCLE)
     Route: 048
     Dates: start: 20220320
  2. FOTIVDA [Suspect]
     Active Substance: TIVOZANIB HYDROCHLORIDE
     Dosage: 1.34 MG, DAILY FOR 21 DAYS WITH 7 DAYS OFF (28-DAY CYCLE)
     Route: 048
     Dates: start: 20220320, end: 2022
  3. AMLODIPINE [Concomitant]
     Active Substance: AMLODIPINE BESYLATE
  4. CABOMETYX [Concomitant]
     Active Substance: CABOZANTINIB S-MALATE
  5. COLACE [Concomitant]
     Active Substance: DOCUSATE SODIUM
  6. COUMADIN [Concomitant]
     Active Substance: WARFARIN SODIUM
  7. CRESTOR [Concomitant]
     Active Substance: ROSUVASTATIN CALCIUM
  8. ATROPINE\DIPHENOXYLATE [Concomitant]
     Active Substance: ATROPINE\DIPHENOXYLATE
  9. FISH OIL [Concomitant]
     Active Substance: FISH OIL
  10. FOLIC ACID [Concomitant]
     Active Substance: FOLIC ACID
  11. GABAPENTIN [Concomitant]
     Active Substance: GABAPENTIN
  12. LYRICA [Concomitant]
     Active Substance: PREGABALIN
  13. MAGNESIUM OXIDE [Concomitant]
     Active Substance: MAGNESIUM OXIDE
  14. METOPROLOL [Concomitant]
     Active Substance: METOPROLOL
  15. NITROSTAT [Concomitant]
     Active Substance: NITROGLYCERIN
  16. ONDANSETRON [Concomitant]
     Active Substance: ONDANSETRON
  17. SELENIUM [Concomitant]
     Active Substance: SELENIUM
  18. SENNA [Concomitant]
     Active Substance: SENNA LEAF\SENNOSIDES\SENNOSIDES A AND B
  19. TYLENOL [Concomitant]
     Active Substance: ACETAMINOPHEN
  20. VITAMIN B12 [Concomitant]
     Active Substance: CYANOCOBALAMIN
  21. VITAMIN D3 [Concomitant]
     Active Substance: CHOLECALCIFEROL

REACTIONS (3)
  - Death [Fatal]
  - Blood pressure increased [Recovering/Resolving]
  - Diarrhoea [Recovering/Resolving]

NARRATIVE: CASE EVENT DATE: 20220101
